FAERS Safety Report 17002236 (Version 1)
Quarter: 2019Q4

REPORT INFORMATION
  Report Type: Spontaneous
  Country: AU (occurrence: AU)
  Receive Date: 20191106
  Receipt Date: 20191106
  Transmission Date: 20200122
  Serious: Yes (Hospitalization)
  Sender: FDA-Public Use
  Company Number: AU-JIANGSU HENGRUI MEDICINE CO., LTD.-2076567

PATIENT
  Age: 3 Year
  Sex: Female
  Weight: 14.8 kg

DRUGS (9)
  1. PARACETAMOL [Concomitant]
     Active Substance: ACETAMINOPHEN
     Route: 045
     Dates: start: 20190406, end: 20190501
  2. CYCLOPHOSPHAMIDE FOR INJECTION USP, 500 MG, 1 G AND 2 G PER SINGLE-DOS [Suspect]
     Active Substance: CYCLOPHOSPHAMIDE
     Indication: REFRACTORY CANCER
     Route: 042
     Dates: start: 20190328, end: 20190922
  3. TOPOTECAN HYDROCHLORIDE. [Suspect]
     Active Substance: TOPOTECAN HYDROCHLORIDE
     Route: 042
     Dates: start: 20190328, end: 20190922
  4. PANADOL [Concomitant]
     Active Substance: ACETAMINOPHEN
     Route: 045
     Dates: start: 20190305
  5. OXYCODONE [Concomitant]
     Active Substance: OXYCODONE
     Route: 045
     Dates: start: 20190305
  6. VENETOCLAX. [Suspect]
     Active Substance: VENETOCLAX
     Route: 048
     Dates: start: 20190326, end: 20190926
  7. PENTAMIDINE [Concomitant]
     Active Substance: PENTAMIDINE
     Route: 042
     Dates: start: 20190416
  8. AMOXYCILLIN [Concomitant]
     Active Substance: AMOXICILLIN
     Route: 045
     Dates: start: 20190828, end: 20190902
  9. FILGRASTIM [Concomitant]
     Active Substance: FILGRASTIM
     Route: 058
     Dates: start: 20190429, end: 20190923

REACTIONS (1)
  - Otitis media [Recovered/Resolved]

NARRATIVE: CASE EVENT DATE: 20191007
